FAERS Safety Report 4925571-8 (Version None)
Quarter: 2006Q1

REPORT INFORMATION
  Report Type: 
  Country: None (occurrence: None)
  Receive Date: 20060228
  Receipt Date: 20050103
  Transmission Date: 20060701
  Serious: Yes (Other)
  Sender: FDA-Public Use
  Company Number: US-GLAXOSMITHKLINE-A0539088A

PATIENT
  Age: 58 Year
  Sex: Female
  Weight: 90.9 kg

DRUGS (11)
  1. LAMICTAL [Suspect]
     Indication: BIPOLAR DISORDER
     Dosage: 300MG PER DAY
     Route: 048
     Dates: end: 20041027
  2. CYSTEX [Concomitant]
  3. ATIVAN [Concomitant]
     Indication: ANXIETY
     Route: 048
     Dates: start: 20031008
  4. DITROPAN [Concomitant]
  5. PRILOSEC [Concomitant]
  6. WELLBUTRIN SR [Concomitant]
     Indication: DEPRESSION
     Route: 048
     Dates: start: 20030701
  7. HYOSCYAMINE [Concomitant]
  8. LEVOTHROID [Concomitant]
  9. HYDROCHLOROTHIAZIDE [Concomitant]
  10. PREMARIN [Concomitant]
  11. METHYLPHENIDATE HCL [Concomitant]
     Indication: DEPRESSION
     Route: 048
     Dates: start: 20040324

REACTIONS (2)
  - DRUG ADMINISTRATION ERROR [None]
  - RASH [None]
